FAERS Safety Report 9301046 (Version 2)
Quarter: 2013Q3

REPORT INFORMATION
  Report Type: Spontaneous
  Country: US (occurrence: US)
  Receive Date: 20130521
  Receipt Date: 20130718
  Transmission Date: 20140515
  Serious: No
  Sender: FDA-Public Use
  Company Number: US-PFIZER INC-2013153786

PATIENT
  Age: 74 Year
  Sex: Female

DRUGS (2)
  1. XALKORI [Suspect]
     Indication: LUNG NEOPLASM MALIGNANT
     Dosage: 250 MG, UNK
     Dates: start: 20130405
  2. XALKORI [Suspect]
     Dosage: 250 MG, 2X/DAY
     Dates: start: 20130422

REACTIONS (2)
  - Vomiting [Unknown]
  - Arthralgia [Unknown]
